FAERS Safety Report 4476524-8 (Version None)
Quarter: 2004Q4

REPORT INFORMATION
  Report Type: 
  Country: None (occurrence: None)
  Receive Date: 20041013
  Receipt Date: 20040924
  Transmission Date: 20050328
  Serious: Yes (Death, Other)
  Sender: FDA-Public Use
  Company Number: USA040979263

PATIENT
  Sex: Female

DRUGS (1)
  1. INSULIN [Suspect]

REACTIONS (1)
  - BREAST CANCER [None]
